FAERS Safety Report 5195499-X (Version None)
Quarter: 2006Q4

REPORT INFORMATION
  Report Type: 
  Country: None (occurrence: None)
  Receive Date: 20061226
  Receipt Date: 20061226
  Transmission Date: 20070319
  Serious: No
  Sender: FDA-Public Use
  Company Number: None

PATIENT
  Age: 39 Year
  Sex: Female
  Weight: 65.7716 kg

DRUGS (1)
  1. MIRACLE RUB MIRACLE OF ALOE [Suspect]
     Indication: MYALGIA
     Dosage: .1 OZ    ONCE   OTHER
     Route: 050
     Dates: start: 20061216, end: 20061216

REACTIONS (2)
  - APPLICATION SITE BURN [None]
  - APPLICATION SITE PAIN [None]
